FAERS Safety Report 8891126 (Version 1)
Quarter: 2012Q4

REPORT INFORMATION
  Report Type: 
  Country: US (occurrence: US)
  Receive Date: 20121107
  Receipt Date: 20121107
  Transmission Date: 20130627
  Serious: No
  Sender: FDA-Public Use
  Company Number: US-009507513-1211USA000674

PATIENT
  Age: 68 Year
  Sex: Male

DRUGS (1)
  1. TEMODAR [Suspect]
     Indication: GLIOBLASTOMA
     Dosage: 150 mg, qd
     Route: 048
     Dates: start: 20121019, end: 201210

REACTIONS (1)
  - Thrombocytopenia [Recovering/Resolving]
